FAERS Safety Report 4950262-7 (Version None)
Quarter: 2006Q1

REPORT INFORMATION
  Report Type: 
  Country: None (occurrence: None)
  Receive Date: 20060322
  Receipt Date: 20060303
  Transmission Date: 20060701
  Serious: Yes (Other)
  Sender: FDA-Public Use
  Company Number: PHEH2006US02950

PATIENT
  Sex: Female

DRUGS (2)
  1. FORADIL [Suspect]
     Indication: DYSPNOEA
     Dates: start: 20060103
  2. GLEEVEC [Suspect]

REACTIONS (6)
  - CHEST DISCOMFORT [None]
  - CHEST PAIN [None]
  - DEVICE MALFUNCTION [None]
  - DYSPHONIA [None]
  - NEOPLASM PROGRESSION [None]
  - POSITRON EMISSION TOMOGRAM ABNORMAL [None]
